FAERS Safety Report 5350238-4 (Version None)
Quarter: 2007Q2

REPORT INFORMATION
  Report Type: 
  Country: None (occurrence: None)
  Receive Date: 20070516
  Receipt Date: 20070315
  Transmission Date: 20071010
  Serious: Yes (Other)
  Sender: FDA-Public Use
  Company Number: 2007020591

PATIENT
  Age: 26 Year
  Sex: Female

DRUGS (2)
  1. DEPO-PROVERA [Suspect]
     Indication: CONTRACEPTION
     Dosage: 150 MG (150 MG, FIRST INJECTION) 150 MG (150 MG, LAST INJECTION)
     Dates: start: 19980401, end: 19980401
  2. DEPO-PROVERA [Suspect]
     Indication: CONTRACEPTION
     Dosage: 150 MG (150 MG, FIRST INJECTION) 150 MG (150 MG, LAST INJECTION)
     Dates: start: 20050201, end: 20050201

REACTIONS (1)
  - OSTEOPENIA [None]
